FAERS Safety Report 8501487-5 (Version None)
Quarter: 2012Q3

REPORT INFORMATION
  Report Type: 
  Country: None (occurrence: None)
  Receive Date: 20120710
  Receipt Date: 20120702
  Transmission Date: 20120928
  Serious: Yes (Other)
  Sender: FDA-Public Use
  Company Number: US-JNJFOC-20120701116

PATIENT
  Sex: Female

DRUGS (1)
  1. REMICADE [Suspect]
     Indication: PSORIATIC ARTHROPATHY
     Route: 042

REACTIONS (8)
  - PERICARDITIS [None]
  - GALLBLADDER DISORDER [None]
  - UTERINE DISORDER [None]
  - CHOLECYSTITIS [None]
  - UTERINE PAIN [None]
  - UTERINE INFLAMMATION [None]
  - GALLBLADDER PAIN [None]
  - IRITIS [None]
